FAERS Safety Report 5974987-X (Version None)
Quarter: 2008Q4

REPORT INFORMATION
  Report Type: 
  Country: None (occurrence: None)
  Receive Date: 20081117
  Receipt Date: 20081105
  Transmission Date: 20090506
  Serious: Yes (Other)
  Sender: FDA-Public Use
  Company Number: ES-IGSA-IG525

PATIENT
  Age: 35 Year
  Sex: Male

DRUGS (1)
  1. VENOGLOBULIN [Suspect]
     Indication: CONGENITAL HYPOGAMMAGLOBULINAEMIA
     Dosage: 20 G (ONCE A MONTH) IV
     Route: 042
     Dates: start: 20080108, end: 20080820

REACTIONS (3)
  - DIARRHOEA [None]
  - HEPATITIS B [None]
  - HEPATITIS INFECTIOUS [None]
